FAERS Safety Report 5209844-X (Version None)
Quarter: 2006Q4

REPORT INFORMATION
  Report Type: 
  Country: None (occurrence: None)
  Receive Date: 20061130
  Receipt Date: 20060411
  Transmission Date: 20070319
  Serious: Yes (Other)
  Sender: FDA-Public Use
  Company Number: 2006050274

PATIENT
  Age: 57 Year
  Sex: Male

DRUGS (6)
  1. ZYVOX [Suspect]
     Indication: LOWER RESPIRATORY TRACT INFECTION
     Dosage: 1200 MG  (600 MG, 2 IN 1 D); ORAL
     Route: 048
     Dates: start: 20060322, end: 20060407
  2. ZANTAC [Suspect]
     Indication: ILL-DEFINED DISORDER
     Dates: end: 20060101
  3. LASIX [Suspect]
     Indication: ILL-DEFINED DISORDER
  4. VALPROIC ACID [Suspect]
     Indication: ILL-DEFINED DISORDER
  5. UNKNOWN MEDICATIONS (ALL OTHER THERAPEUTIC PRODUCTS) [Concomitant]
  6. ZANTAC [Concomitant]

REACTIONS (1)
  - THROMBOCYTOPENIA [None]
